FAERS Safety Report 14640979 (Version 6)
Quarter: 2019Q4

REPORT INFORMATION
  Report Type: Spontaneous
  Country: US (occurrence: US)
  Receive Date: 20180315
  Receipt Date: 20191125
  Transmission Date: 20200122
  Serious: Yes (Other)
  Sender: FDA-Public Use
  Company Number: US-PFIZER INC-2018101103

PATIENT
  Age: 56 Year
  Sex: Female

DRUGS (1)
  1. XELJANZ XR [Suspect]
     Active Substance: TOFACITINIB CITRATE
     Indication: RHEUMATOID ARTHRITIS
     Dosage: 11 MG, DAILY
     Route: 048
     Dates: start: 201801

REACTIONS (12)
  - Mobility decreased [Unknown]
  - Sinusitis [Unknown]
  - Arthralgia [Not Recovered/Not Resolved]
  - Infection [Unknown]
  - Drug ineffective [Unknown]
  - Fall [Unknown]
  - Pain [Unknown]
  - Swelling [Unknown]
  - Condition aggravated [Unknown]
  - Ankle fracture [Unknown]
  - Musculoskeletal stiffness [Recovering/Resolving]
  - Depressed mood [Unknown]

NARRATIVE: CASE EVENT DATE: 201804
